FAERS Safety Report 7905316-X (Version None)
Quarter: 2011Q4

REPORT INFORMATION
  Report Type: 
  Country: None (occurrence: None)
  Receive Date: 20111109
  Receipt Date: 20111031
  Transmission Date: 20120403
  Serious: Yes (Other)
  Sender: FDA-Public Use
  Company Number: US-ASTRAZENECA-2011SE65900

PATIENT
  Age: 58 Year
  Sex: Female

DRUGS (1)
  1. NEXIUM [Suspect]
     Route: 048

REACTIONS (9)
  - SINGLE FUNCTIONAL KIDNEY [None]
  - BLOOD CHOLESTEROL INCREASED [None]
  - DYSGEUSIA [None]
  - RIB DEFORMITY [None]
  - DYSPHAGIA [None]
  - APHAGIA [None]
  - WEIGHT DECREASED [None]
  - HYPERTENSION [None]
  - DRUG DOSE OMISSION [None]
